FAERS Safety Report 9342377 (Version 1)
Quarter: 2013Q2

REPORT INFORMATION
  Report Type: Spontaneous
  Country: JP (occurrence: None)
  Receive Date: 20130607
  Receipt Date: 20130607
  Transmission Date: 20140414
  Serious: Yes (Other)
  Sender: FDA-Public Use
  Company Number: FK201301906

PATIENT
  Age: 52 Year
  Sex: Female

DRUGS (2)
  1. CISPLATIN [Suspect]
     Indication: OESOPHAGEAL CARCINOMA
  2. FLUOROURACIL [Suspect]
     Indication: OESOPHAGEAL CARCINOMA
     Dosage: 800 MG/M2, INTRAVENOUS (NOT OTHERWISE SPECIFIED)
     Route: 042

REACTIONS (4)
  - Renal salt-wasting syndrome [None]
  - Posterior reversible encephalopathy syndrome [None]
  - Hyponatraemia [None]
  - Nausea [None]
